FAERS Safety Report 8020695-3 (Version None)
Quarter: 2012Q1

REPORT INFORMATION
  Report Type: 
  Country: None (occurrence: None)
  Receive Date: 20120103
  Receipt Date: 20111222
  Transmission Date: 20120608
  Serious: Yes (Other)
  Sender: FDA-Public Use
  Company Number: JP-ASTRAZENECA-2011SE78497

PATIENT
  Age: 37 Year
  Sex: Male
  Weight: 63 kg

DRUGS (2)
  1. CANDESARTAN CILEXETIL [Suspect]
     Dosage: REDUCED DOSE
     Route: 048
     Dates: start: 20111102
  2. CANDESARTAN CILEXETIL [Suspect]
     Indication: CONGESTIVE CARDIOMYOPATHY
     Route: 048
     Dates: start: 20111026

REACTIONS (2)
  - HYPOTENSION [None]
  - DIZZINESS [None]
